FAERS Safety Report 16582286 (Version 1)
Quarter: 2019Q3

REPORT INFORMATION
  Report Type: Report from Study
  Country: GB (occurrence: GB)
  Receive Date: 20190717
  Receipt Date: 20190717
  Transmission Date: 20191004
  Serious: Yes (Other)
  Sender: FDA-Public Use
  Company Number: GB-ROCHE-2353529

PATIENT

DRUGS (4)
  1. MIDAZOLAM [Suspect]
     Active Substance: MIDAZOLAM HYDROCHLORIDE
     Indication: SEDATIVE THERAPY
     Route: 042
  2. FELYPRESSIN [Concomitant]
     Active Substance: FELYPRESSIN
     Indication: ANAESTHESIA
     Dosage: 0.03 IU/ML
     Route: 065
  3. DIAZEPAM. [Suspect]
     Active Substance: DIAZEPAM
     Indication: SEDATIVE THERAPY
     Route: 042
  4. PRILOCAINE [Concomitant]
     Active Substance: PRILOCAINE
     Indication: ANAESTHESIA
     Route: 065

REACTIONS (1)
  - Apnoea [Unknown]
